FAERS Safety Report 25060748 (Version 1)
Quarter: 2025Q1

REPORT INFORMATION
  Report Type: Spontaneous
  Country: US (occurrence: US)
  Receive Date: 20250310
  Receipt Date: 20250310
  Transmission Date: 20250408
  Serious: Yes (Other)
  Sender: PROCTER AND GAMBLE
  Company Number: US-PROCTER_AND_GAMBLE-GS25027222

PATIENT
  Age: 48 Year
  Sex: Female

DRUGS (1)
  1. OLAY COMPLETE PLUS DAILY FACIAL MOISTURIZER WITH SUNSCREEN BROAD SPECT [Suspect]
     Active Substance: AVOBENZONE\HOMOSALATE\OCTISALATE\OCTOCRYLENE
     Dosage: PEA SIZE, ONCE EVERY MORNING
     Route: 061
     Dates: start: 202502, end: 20250225

REACTIONS (1)
  - Lacrimation increased [Recovered/Resolved]

NARRATIVE: CASE EVENT DATE: 20250201
